FAERS Safety Report 5790123-7 (Version None)
Quarter: 2008Q2

REPORT INFORMATION
  Report Type: 
  Country: None (occurrence: None)
  Receive Date: 20080626
  Receipt Date: 20080312
  Transmission Date: 20081010
  Serious: No
  Sender: FDA-Public Use
  Company Number: A0682035A

PATIENT
  Sex: Female

DRUGS (2)
  1. ALLI [Suspect]
     Indication: DRUG USE FOR UNKNOWN INDICATION
     Route: 048
  2. ZYRTEC [Concomitant]

REACTIONS (9)
  - ABDOMINAL DISTENSION [None]
  - DRUG INEFFECTIVE [None]
  - FLATULENCE [None]
  - HEADACHE [None]
  - HUNGER [None]
  - MALAISE [None]
  - RECTAL DISCHARGE [None]
  - WEIGHT FLUCTUATION [None]
  - WEIGHT INCREASED [None]
